FAERS Safety Report 14280683 (Version 1)
Quarter: 2017Q4

REPORT INFORMATION
  Report Type: Spontaneous
  Country: US (occurrence: US)
  Receive Date: 20171213
  Receipt Date: 20171213
  Transmission Date: 20180321
  Serious: No
  Sender: FDA-Public Use
  Company Number: US-009507513-1711USA007327

PATIENT
  Age: 31 Year
  Sex: Female
  Weight: 56.69 kg

DRUGS (1)
  1. NEXPLANON [Suspect]
     Active Substance: ETONOGESTREL
     Indication: CONTRACEPTION
     Dosage: 1 IMPLANT, 3 YEAR IMPLANT IN RIGTH ARM
     Route: 059
     Dates: start: 20160812

REACTIONS (6)
  - Abdominal pain upper [Unknown]
  - Nausea [Unknown]
  - Body temperature increased [Unknown]
  - Headache [Unknown]
  - Chills [Unknown]
  - Weight decreased [Unknown]

NARRATIVE: CASE EVENT DATE: 201707
